FAERS Safety Report 14204354 (Version 2)
Quarter: 2018Q1

REPORT INFORMATION
  Report Type: Report from Study
  Country: DE (occurrence: DE)
  Receive Date: 20171120
  Receipt Date: 20180110
  Transmission Date: 20180508
  Serious: Yes (Other)
  Sender: FDA-Public Use
  Company Number: DE-ASTELLAS-2017US047435

PATIENT
  Age: 72 Year
  Sex: Male
  Weight: 100 kg

DRUGS (83)
  1. PANTOZOL [Concomitant]
     Active Substance: PANTOPRAZOLE SODIUM
     Indication: PROPHYLAXIS
     Route: 048
     Dates: start: 20170110, end: 20170127
  2. EBRANTIL                           /00631801/ [Concomitant]
     Active Substance: URAPIDIL
     Indication: HYPERTENSION
     Route: 048
     Dates: start: 20170121, end: 20170127
  3. STEROFUNDIN [Concomitant]
     Active Substance: CALCIUM CHLORIDE\MAGNESIUM CHLORIDE\POTASSIUM CHLORIDE\SODIUM ACETATE\SODIUM CHLORIDE
     Indication: HYPERNATRAEMIA
     Route: 042
     Dates: start: 20170125, end: 20170126
  4. BELOC-ZOK COMP [Concomitant]
     Active Substance: HYDROCHLOROTHIAZIDE\METOPROLOL SUCCINATE
     Indication: HYPERTENSION
     Route: 048
     Dates: start: 20170131, end: 20170201
  5. DOBUTREX [Concomitant]
     Active Substance: DOBUTAMINE HYDROCHLORIDE
     Indication: SEPTIC SHOCK
     Dosage: 0.2 ? 4.6 ML, AS NEEDED
     Route: 042
     Dates: start: 20170202, end: 20170207
  6. TORASEMID [Concomitant]
     Active Substance: TORSEMIDE
     Indication: HYPERTENSION
     Route: 048
     Dates: start: 20170213, end: 20170217
  7. FERLECIT [Concomitant]
     Indication: NEPHROGENIC ANAEMIA
     Dosage: UNK UNK, UNKNOWN FREQ.
     Route: 065
  8. TACROLIMUS. [Suspect]
     Active Substance: TACROLIMUS
     Indication: RENAL TRANSPLANT
     Route: 048
     Dates: start: 20170110
  9. PANTOZOL [Concomitant]
     Active Substance: PANTOPRAZOLE SODIUM
     Route: 048
     Dates: start: 20170131, end: 20170131
  10. HALDOL [Concomitant]
     Active Substance: HALOPERIDOL
     Indication: DELIRIUM
     Route: 042
     Dates: start: 20170131, end: 20170201
  11. MERONEM [Concomitant]
     Active Substance: MEROPENEM
     Indication: PNEUMONIA
     Route: 042
     Dates: start: 20170202, end: 20170205
  12. INSULIN                            /00646001/ [Concomitant]
     Active Substance: INSULIN NOS
     Indication: HYPERKALAEMIA
     Dosage: UNK UNK, AS NEEDED
     Route: 042
     Dates: start: 20170110, end: 20170110
  13. METOPROLOL. [Concomitant]
     Active Substance: METOPROLOL
     Indication: HYPERTENSION
     Route: 042
     Dates: start: 20170203, end: 20170203
  14. AMLODIPIN                          /00972401/ [Concomitant]
     Active Substance: AMLODIPINE BESYLATE
     Indication: HYPERTENSION
     Route: 048
     Dates: start: 20170208, end: 20170214
  15. ARANESP [Concomitant]
     Active Substance: DARBEPOETIN ALFA
     Indication: NEPHROGENIC ANAEMIA
     Route: 058
     Dates: start: 20170212, end: 20170212
  16. RENAGEL [Concomitant]
     Active Substance: SEVELAMER HYDROCHLORIDE
     Indication: HYPERPHOSPHATAEMIA
     Dosage: UNK UNK, UNKNOWN FREQ.
     Route: 065
  17. SIMVASTATIN. [Concomitant]
     Active Substance: SIMVASTATIN
     Indication: CARDIOVASCULAR EVENT PROPHYLAXIS
     Dosage: UNK UNK, UNKNOWN FREQ.
     Route: 065
  18. PRAVASTATIN. [Concomitant]
     Active Substance: PRAVASTATIN
     Indication: CARDIOVASCULAR EVENT PROPHYLAXIS
     Route: 048
     Dates: start: 20170110, end: 20170127
  19. ACTRAPID [Concomitant]
     Active Substance: INSULIN HUMAN
     Dosage: UNK, AS NEEDED
     Route: 058
     Dates: start: 20170215
  20. VOMEX A [Concomitant]
     Active Substance: DIMENHYDRINATE
     Indication: NAUSEA
     Dosage: INTERMITTENT, 1X
     Route: 048
     Dates: start: 20170131, end: 20170131
  21. BELOC-ZOK COMP [Concomitant]
     Active Substance: HYDROCHLOROTHIAZIDE\METOPROLOL SUCCINATE
     Indication: CARDIAC FAILURE
  22. MELPERON [Concomitant]
     Active Substance: MELPERONE
     Indication: DELIRIUM
     Route: 048
     Dates: start: 20170131, end: 20170201
  23. FUROSEMID                          /00032601/ [Concomitant]
     Active Substance: FUROSEMIDE
     Indication: PULMONARY OEDEMA
     Route: 042
     Dates: start: 20170131, end: 20170201
  24. INSULIN                            /00646001/ [Concomitant]
     Active Substance: INSULIN NOS
     Indication: DIABETES MELLITUS
     Dosage: 0 ? 50 IU/HOUR, AS NEEDED
     Route: 065
     Dates: start: 20170202, end: 20170211
  25. THIAMIN [Concomitant]
     Active Substance: THIAMINE
     Indication: PROPHYLAXIS
     Route: 042
     Dates: start: 20170207, end: 20170208
  26. NITROGLYCERINE [Concomitant]
     Active Substance: NITROGLYCERIN
     Indication: PULMONARY OEDEMA
     Dosage: 0.2 ? 0.8 ML/HOUR
     Route: 042
     Dates: start: 20170207, end: 20170209
  27. CALCIUM CHLORIDE. [Concomitant]
     Active Substance: CALCIUM CHLORIDE
     Indication: HYPOCALCAEMIA
     Dosage: 0.1 ML, AS NEEDED
     Route: 042
     Dates: start: 20170207, end: 20170207
  28. DOXAZOSIN [Concomitant]
     Active Substance: DOXAZOSIN\DOXAZOSIN MESYLATE
     Indication: HYPERTENSION
     Dosage: UNK UNK, UNKNOWN FREQ.
     Route: 065
  29. MAGNESIUM VERLA                    /00648601/ [Concomitant]
     Active Substance: MAGNESIUM
     Indication: PROPHYLAXIS
     Route: 048
     Dates: start: 20170110, end: 20170127
  30. MAGNESIUM VERLA                    /00648601/ [Concomitant]
     Active Substance: MAGNESIUM
     Route: 048
     Dates: start: 20170131, end: 20170201
  31. AMPHO MORONAL [Concomitant]
     Active Substance: AMPHOTERICIN B
     Dosage: 4 X 1 PIPETTE, UNKNOWN FREQ.
     Route: 048
     Dates: start: 20170215
  32. TAZOBAC [Concomitant]
     Active Substance: PIPERACILLIN SODIUM\TAZOBACTAM SODIUM
     Indication: PNEUMONIA
     Route: 042
     Dates: start: 20170131, end: 20170131
  33. CORDAREX [Concomitant]
     Active Substance: AMIODARONE
     Route: 042
     Dates: start: 20170202, end: 20170202
  34. ARTERENOL [Concomitant]
     Active Substance: NOREPINEPHRINE HYDROCHLORIDE, (+/-)-
     Indication: SEPTIC SHOCK
     Dosage: 3 ML/HOUR
     Route: 042
     Dates: start: 20170202, end: 20170207
  35. SODIUM CARBONATE [Concomitant]
     Active Substance: SODIUM CARBONATE
     Indication: METABOLIC ACIDOSIS
     Route: 042
     Dates: start: 20170202, end: 20170202
  36. STAPHYLEX                          /00239102/ [Concomitant]
     Indication: PNEUMONIA
     Route: 042
     Dates: start: 20170203, end: 20170217
  37. PIPERACILLIN/TAZOBACTAM [Concomitant]
     Active Substance: PIPERACILLIN SODIUM\TAZOBACTAM SODIUM
     Indication: INFECTION
     Route: 042
     Dates: start: 20170217, end: 20170224
  38. BICANORM [Concomitant]
     Active Substance: SODIUM BICARBONATE
     Indication: METABOLIC ACIDOSIS
     Route: 048
     Dates: start: 20170220, end: 20170228
  39. ENALAPRIL [Concomitant]
     Active Substance: ENALAPRIL
     Indication: CARDIAC FAILURE
     Dosage: UNK UNK, UNKNOWN FREQ.
     Route: 065
  40. ACTRAPID [Concomitant]
     Active Substance: INSULIN HUMAN
     Dosage: 1-13 IU, AS NEEDED
     Route: 058
     Dates: start: 20170131, end: 20170201
  41. VALCYTE [Concomitant]
     Active Substance: VALGANCICLOVIR HYDROCHLORIDE
     Indication: PROPHYLAXIS
     Route: 048
     Dates: start: 20170111, end: 20170127
  42. CARMEN                             /00740901/ [Concomitant]
     Active Substance: CARBOPLATIN
     Route: 048
     Dates: start: 20170215, end: 20170307
  43. STEROFUNDIN [Concomitant]
     Active Substance: CALCIUM CHLORIDE\MAGNESIUM CHLORIDE\POTASSIUM CHLORIDE\SODIUM ACETATE\SODIUM CHLORIDE
     Indication: HYPERKALAEMIA
     Route: 042
     Dates: start: 20170131, end: 20170131
  44. GLUCOSE [Concomitant]
     Active Substance: DEXTROSE
     Route: 042
     Dates: start: 20170203, end: 20170204
  45. MOXONIDIN [Concomitant]
     Active Substance: MOXONIDINE
     Indication: HYPERTENSION
     Dosage: 0.4 MG, UNKNOWN FREQ.
     Route: 048
     Dates: start: 20170209, end: 20170224
  46. TORASEMID [Concomitant]
     Active Substance: TORSEMIDE
     Route: 048
     Dates: start: 20170222
  47. TORASEMID [Concomitant]
     Active Substance: TORSEMIDE
     Route: 048
     Dates: start: 20170310
  48. NEPHRO [Concomitant]
     Indication: HYPERPHOSPHATAEMIA
     Dosage: UNK UNK, UNKNOWN FREQ.
     Route: 065
  49. AMIODARON                          /00133101/ [Concomitant]
     Active Substance: AMIODARONE
     Indication: ATRIAL FIBRILLATION
     Dosage: UNK UNK, UNKNOWN FREQ.
     Route: 065
  50. CALCIUM ACETATE. [Concomitant]
     Active Substance: CALCIUM ACETATE
     Indication: HYPERPHOSPHATAEMIA
     Dosage: UNK UNK, UNKNOWN FREQ.
     Route: 065
  51. PANTOZOL [Concomitant]
     Active Substance: PANTOPRAZOLE SODIUM
     Route: 042
     Dates: start: 20170201, end: 20170214
  52. RESONIUM [Concomitant]
     Active Substance: SODIUM POLYSTYRENE SULFONATE
     Indication: HYPERKALAEMIA
     Dosage: 1 MEASURING SPOON, AS NEEDED
     Route: 065
     Dates: start: 20170110, end: 20170125
  53. ACTRAPID [Concomitant]
     Active Substance: INSULIN HUMAN
     Indication: DIABETES MELLITUS
     Dosage: 1 - 20 (3/6/10 IU), AS NEEDED
     Route: 042
     Dates: start: 20170111, end: 20170127
  54. CARMEN                             /00740901/ [Concomitant]
     Active Substance: CARBOPLATIN
     Indication: HYPERTENSION
     Route: 048
     Dates: start: 20170115, end: 20170127
  55. CARMEN                             /00740901/ [Concomitant]
     Active Substance: CARBOPLATIN
     Route: 048
     Dates: start: 20170131, end: 20170201
  56. EBRANTIL                           /00631801/ [Concomitant]
     Active Substance: URAPIDIL
     Dosage: 50 ML (30 MG/AMPOULE), UNKNOWN FREQ.
     Route: 042
     Dates: start: 20170224, end: 20170225
  57. AZATHIOPRIN [Concomitant]
     Active Substance: AZATHIOPRINE
     Indication: PROPHYLAXIS AGAINST TRANSPLANT REJECTION
     Dosage: 100 MG/200 MG, UNKNOWN FREQ.
     Route: 048
     Dates: start: 20170131, end: 20170201
  58. AMPHO MORONAL [Concomitant]
     Active Substance: AMPHOTERICIN B
     Indication: PROPHYLAXIS
     Route: 065
     Dates: start: 20170110, end: 20170127
  59. SUPRARENIN                         /00003901/ [Concomitant]
     Indication: SEPTIC SHOCK
     Dosage: 0.09 ?G/KG/MINUTE, (39.75 ?G) AT 8 AM
     Route: 065
     Dates: start: 20170202, end: 20170202
  60. KONAKION [Concomitant]
     Active Substance: PHYTONADIONE
     Indication: HAEMORRHAGE PROPHYLAXIS
     Dosage: 1 AMPOULE, AS NEEDED
     Route: 042
     Dates: start: 20170206, end: 20170207
  61. PANTOZOL [Concomitant]
     Active Substance: PANTOPRAZOLE SODIUM
     Route: 048
     Dates: start: 20170215
  62. ACTRAPHANE [Concomitant]
     Active Substance: INSULIN HUMAN
     Indication: DIABETES MELLITUS
     Dosage: 6 ? 0 ? 4 IU, AS NEEDED
     Route: 058
     Dates: start: 20170111, end: 20170127
  63. KEPINOL [Concomitant]
     Active Substance: SULFAMETHOXAZOLE\TRIMETHOPRIM
     Indication: PROPHYLAXIS
     Route: 048
     Dates: start: 20170111, end: 20170123
  64. EBRANTIL                           /00631801/ [Concomitant]
     Active Substance: URAPIDIL
     Route: 048
     Dates: start: 20170131, end: 20170201
  65. AZATHIOPRIN [Concomitant]
     Active Substance: AZATHIOPRINE
     Route: 048
     Dates: start: 20170217, end: 20170217
  66. MELPERON [Concomitant]
     Active Substance: MELPERONE
     Route: 048
     Dates: start: 20170216, end: 20170310
  67. HALDOL [Concomitant]
     Active Substance: HALOPERIDOL
     Route: 048
     Dates: start: 20170207, end: 20170210
  68. TAVOR (LORAZEPAM) [Concomitant]
     Active Substance: LORAZEPAM
     Indication: DELIRIUM
     Route: 042
     Dates: start: 20170131, end: 20170201
  69. FUROSEMID                          /00032601/ [Concomitant]
     Active Substance: FUROSEMIDE
     Route: 042
     Dates: start: 20170218, end: 20170221
  70. CALCIUM GLUCONATE. [Concomitant]
     Active Substance: CALCIUM GLUCONATE
     Indication: HYPERKALAEMIA
     Dosage: 7 MMOL/L, 10 ML, (7 PM)
     Route: 042
     Dates: start: 20170202, end: 20170202
  71. ZYVOXID [Concomitant]
     Active Substance: LINEZOLID
     Indication: PNEUMONIA
     Route: 042
     Dates: start: 20170203, end: 20170204
  72. GLUCOSE [Concomitant]
     Active Substance: DEXTROSE
     Indication: HYPERKALAEMIA
     Dosage: 0.4 G/ML, AS NEEDED
     Route: 042
     Dates: start: 20170110, end: 20170110
  73. BONDIOL [Concomitant]
     Active Substance: ALFACALCIDOL
     Indication: NEPHROGENIC ANAEMIA
     Dosage: UNK UNK, UNKNOWN FREQ.
     Route: 065
  74. VIGANTOLETTEN [Concomitant]
     Active Substance: CHOLECALCIFEROL
     Indication: OSTEOPOROSIS PROPHYLAXIS
     Route: 048
     Dates: start: 20170111, end: 20170127
  75. VALCYTE [Concomitant]
     Active Substance: VALGANCICLOVIR HYDROCHLORIDE
     Route: 048
     Dates: start: 20170201, end: 20170201
  76. EBRANTIL                           /00631801/ [Concomitant]
     Active Substance: URAPIDIL
     Dosage: 5-50 MG/HOUR, UNKNOWN FREQ.
     Route: 042
     Dates: start: 20170207, end: 20170215
  77. AMPHO MORONAL [Concomitant]
     Active Substance: AMPHOTERICIN B
     Dosage: 4 PIPETTES, ONCE DAILY
     Route: 048
     Dates: start: 20170131, end: 20170201
  78. CORDAREX [Concomitant]
     Active Substance: AMIODARONE
     Indication: ATRIAL FIBRILLATION
     Route: 048
     Dates: start: 20170201, end: 20170201
  79. POTASSIUM                          /00031402/ [Concomitant]
     Active Substance: POTASSIUM
     Indication: HYPOKALAEMIA
     Dosage: 0.1 ? 20 MMOL/HOUR
     Route: 065
     Dates: start: 20170202, end: 20170212
  80. MORPHINE [Concomitant]
     Active Substance: MORPHINE
     Indication: PAIN
     Dosage: 0 ? 10 MG/HOUR
     Route: 042
     Dates: start: 20170205, end: 20170206
  81. MOXONIDIN [Concomitant]
     Active Substance: MOXONIDINE
     Dosage: 0.4 MG, UNKNOWN FREQ.
     Route: 048
     Dates: start: 20170306
  82. BISOPROLOL [Concomitant]
     Active Substance: BISOPROLOL
     Indication: HYPERTENSION
     Route: 048
     Dates: start: 20170215
  83. BIOPOIN [Concomitant]
     Indication: NEPHROGENIC ANAEMIA
     Dosage: UNK UNK, UNKNOWN FREQ.
     Route: 065

REACTIONS (1)
  - Histology abnormal [Not Recovered/Not Resolved]

NARRATIVE: CASE EVENT DATE: 20170224
